FAERS Safety Report 19771145 (Version 2)
Quarter: 2021Q3

REPORT INFORMATION
  Report Type: Report from Study
  Country: BR (occurrence: BR)
  Receive Date: 20210831
  Receipt Date: 20210831
  Transmission Date: 20211014
  Serious: Yes (Other)
  Sender: FDA-Public Use
  Company Number: NVSC2021BR083559

PATIENT
  Age: 47 Year
  Sex: Female

DRUGS (3)
  1. COSENTYX [Suspect]
     Active Substance: SECUKINUMAB
     Indication: PSORIATIC ARTHROPATHY
     Dosage: 300 MG, UNKNOWN
     Route: 065
     Dates: start: 20170717, end: 20210316
  2. COSENTYX [Suspect]
     Active Substance: SECUKINUMAB
     Indication: PSORIASIS
     Dosage: 300 MG, QMO
     Route: 065
     Dates: end: 202102
  3. GOLIMUMAB [Concomitant]
     Active Substance: GOLIMUMAB
     Indication: PRODUCT USED FOR UNKNOWN INDICATION
     Dosage: UNK
     Route: 065
     Dates: start: 20210401

REACTIONS (27)
  - Peripheral swelling [Unknown]
  - Hypokinesia [Unknown]
  - Pruritus [Not Recovered/Not Resolved]
  - Drug hypersensitivity [Recovering/Resolving]
  - Asthenia [Recovering/Resolving]
  - Fluid retention [Recovered/Resolved]
  - Atrophy [Unknown]
  - Arthritis [Recovering/Resolving]
  - Pyrexia [Recovering/Resolving]
  - Injury [Recovering/Resolving]
  - Wound infection [Recovered/Resolved]
  - Limb discomfort [Unknown]
  - Nasal congestion [Recovering/Resolving]
  - Wound [Recovering/Resolving]
  - Feeling hot [Unknown]
  - Irritability [Unknown]
  - Gait disturbance [Unknown]
  - Influenza [Recovering/Resolving]
  - Cough [Recovering/Resolving]
  - Pain in extremity [Recovering/Resolving]
  - Fear [Unknown]
  - Drug ineffective [Unknown]
  - Decreased immune responsiveness [Recovering/Resolving]
  - Arthralgia [Recovering/Resolving]
  - Inflammation [Unknown]
  - Wound complication [Unknown]
  - Psoriasis [Not Recovered/Not Resolved]

NARRATIVE: CASE EVENT DATE: 20210821
